FAERS Safety Report 10465604 (Version 1)
Quarter: 2014Q3

REPORT INFORMATION
  Report Type: Spontaneous
  Country: FR (occurrence: FR)
  Receive Date: 20140919
  Receipt Date: 20140919
  Transmission Date: 20150326
  Serious: Yes (Hospitalization, Other)
  Sender: FDA-Public Use
  Company Number: FR-PFIZER INC-2014256686

PATIENT
  Age: 45 Year
  Sex: Female

DRUGS (8)
  1. ACETAMINOPHEN AND CODEINE PHOSPHATE [Suspect]
     Active Substance: ACETAMINOPHEN\CODEINE PHOSPHATE
     Dosage: UNK
     Route: 048
  2. VALIUM [Suspect]
     Active Substance: DIAZEPAM
     Dosage: ONE SINGLE INTAKE
     Route: 048
     Dates: start: 20140729, end: 20140729
  3. TERCIAN [Suspect]
     Active Substance: CYAMEMAZINE
     Dosage: UNK
     Route: 048
  4. TERCIAN [Suspect]
     Active Substance: CYAMEMAZINE
     Dosage: ONE SINGLE INTAKE
     Route: 048
     Dates: start: 20140729, end: 20140729
  5. EFFEXOR [Suspect]
     Active Substance: VENLAFAXINE HYDROCHLORIDE
     Dosage: ONE SINGLE INTAKE
     Route: 048
     Dates: start: 20140729, end: 20140729
  6. VALIUM [Suspect]
     Active Substance: DIAZEPAM
     Dosage: UNK
     Route: 048
  7. ACETAMINOPHEN AND CODEINE PHOSPHATE [Suspect]
     Active Substance: ACETAMINOPHEN\CODEINE PHOSPHATE
     Dosage: ONE SINGLE INTAKE
     Route: 048
     Dates: start: 20140729, end: 20140729
  8. EFFEXOR [Suspect]
     Active Substance: VENLAFAXINE HYDROCHLORIDE
     Dosage: UNK
     Route: 048

REACTIONS (5)
  - Coma [Recovered/Resolved]
  - Pneumonia aspiration [Unknown]
  - Klebsiella test positive [Unknown]
  - Bundle branch block [Unknown]
  - Toxicity to various agents [Unknown]

NARRATIVE: CASE EVENT DATE: 201407
